FAERS Safety Report 6368045-2 (Version None)
Quarter: 2009Q3

REPORT INFORMATION
  Report Type: 
  Country: None (occurrence: None)
  Receive Date: 20090922
  Receipt Date: 20090909
  Transmission Date: 20100115
  Serious: Yes (Hospitalization, Other)
  Sender: FDA-Public Use
  Company Number: US-ROCHE-652965

PATIENT
  Age: 38 Year
  Sex: Female

DRUGS (10)
  1. PEGASYS [Suspect]
     Indication: HEPATITIS C
     Route: 058
     Dates: start: 20071201, end: 20080801
  2. COPEGUS [Suspect]
     Indication: HEPATITIS C
     Route: 065
     Dates: start: 20071201, end: 20080801
  3. WELLBUTRIN [Concomitant]
  4. LEXAPRO [Concomitant]
  5. PROVIGIL [Concomitant]
  6. NORETHINDRONE [Concomitant]
  7. VIVELLE [Concomitant]
  8. LEVOTHYROXINE SODIUM [Concomitant]
  9. COREG [Concomitant]
  10. ATACAND [Concomitant]

REACTIONS (6)
  - ANAEMIA [None]
  - CARDIAC FAILURE [None]
  - CONFUSIONAL STATE [None]
  - DISTURBANCE IN ATTENTION [None]
  - FATIGUE [None]
  - RASH [None]
